FAERS Safety Report 13553694 (Version 3)
Quarter: 2017Q2

REPORT INFORMATION
  Report Type: Spontaneous
  Country: CN (occurrence: CN)
  Receive Date: 20170517
  Receipt Date: 20170529
  Transmission Date: 20170830
  Serious: Yes (Death)
  Sender: FDA-Public Use
  Company Number: CN-ROCHE-1935090

PATIENT
  Age: 46 Year
  Sex: Male
  Weight: 93 kg

DRUGS (3)
  1. FELODIPINE. [Concomitant]
     Active Substance: FELODIPINE
  2. NOVOLIN [Concomitant]
     Active Substance: INSULIN HUMAN
     Indication: DIABETES MELLITUS
  3. ACTILYSE [Suspect]
     Active Substance: ALTEPLASE
     Indication: BRAIN STEM SYNDROME
     Route: 042
     Dates: start: 20170510, end: 20170510

REACTIONS (2)
  - Gingival bleeding [Unknown]
  - Acute coronary syndrome [Fatal]

NARRATIVE: CASE EVENT DATE: 20170510
